FAERS Safety Report 8260483-6 (Version None)
Quarter: 2012Q2

REPORT INFORMATION
  Report Type: 
  Country: None (occurrence: None)
  Receive Date: 20120404
  Receipt Date: 20120330
  Transmission Date: 20120825
  Serious: Yes (Other)
  Sender: FDA-Public Use
  Company Number: DE-ABBOTT-12P-062-0920282-00

PATIENT
  Sex: Female

DRUGS (2)
  1. HUMIRA [Suspect]
     Indication: SARCOIDOSIS
     Route: 058
     Dates: start: 20090501, end: 20110801
  2. DRUG AGAINST OSTEOPOROSIS [Concomitant]
     Indication: PRODUCT USED FOR UNKNOWN INDICATION

REACTIONS (4)
  - OFF LABEL USE [None]
  - PAIN [None]
  - RHEUMATOID FACTOR INCREASED [None]
  - ARTHROPATHY [None]
